FAERS Safety Report 5570101-3 (Version None)
Quarter: 2007Q4

REPORT INFORMATION
  Report Type: 
  Country: None (occurrence: None)
  Receive Date: 20071218
  Receipt Date: 20071203
  Transmission Date: 20080405
  Serious: Yes (Death, Life-Threatening, Other)
  Sender: FDA-Public Use
  Company Number: 2007P1000718

PATIENT
  Age: 58 Year
  Sex: Male

DRUGS (2)
  1. BUSULFAN                         (BUSULFAN) [Suspect]
     Indication: STEM CELL TRANSPLANT
     Dosage: 31.72 ML;QD;IV
     Route: 042
     Dates: start: 20070224, end: 20070225
  2. FLUDARABINE PHOSPHATE [Concomitant]

REACTIONS (22)
  - ACUTE GRAFT VERSUS HOST DISEASE [None]
  - ACUTE GRAFT VERSUS HOST DISEASE IN SKIN [None]
  - ANOREXIA [None]
  - ASCITES [None]
  - BK VIRUS INFECTION [None]
  - BLISTER [None]
  - BLOOD BILIRUBIN INCREASED [None]
  - CYSTITIS HAEMORRHAGIC [None]
  - DIARRHOEA [None]
  - HAEMATOCHEZIA [None]
  - IDIOPATHIC PNEUMONIA SYNDROME [None]
  - INTERSTITIAL LUNG DISEASE [None]
  - JAUNDICE [None]
  - MALAISE [None]
  - NAUSEA [None]
  - PLATELET COUNT DECREASED [None]
  - PROTEIN TOTAL DECREASED [None]
  - RENAL FAILURE ACUTE [None]
  - RESPIRATORY FAILURE [None]
  - SEPSIS [None]
  - STOMATITIS [None]
  - TRANSAMINASES INCREASED [None]
